FAERS Safety Report 22270260 (Version 2)
Quarter: 2023Q2

REPORT INFORMATION
  Report Type: Spontaneous
  Country: CN (occurrence: CN)
  Receive Date: 20230501
  Receipt Date: 20230510
  Transmission Date: 20230722
  Serious: Yes (Death, Other)
  Sender: FDA-Public Use
  Company Number: CN-AMGEN-CHNSP2023073564

PATIENT
  Age: 5 Year
  Sex: Male

DRUGS (4)
  1. BLINCYTO [Suspect]
     Active Substance: BLINATUMOMAB
     Indication: Acute lymphocytic leukaemia recurrent
     Dosage: 5 MICROGRAM PER SQUARE METRE, DAYS 1-7
     Route: 042
  2. BLINCYTO [Suspect]
     Active Substance: BLINATUMOMAB
     Dosage: 15 MICROGRAM PER SQUARE METRE, DAYS 8-22
     Route: 042
  3. DEXAMETHASONE [Concomitant]
     Active Substance: DEXAMETHASONE
     Indication: Allergy prophylaxis
     Dosage: 5 MILLIGRAM  PER SQUARE METRE, 0.5 HOURS AFTER BLINCYTO
  4. DEXAMETHASONE [Concomitant]
     Active Substance: DEXAMETHASONE
     Indication: Prophylaxis
     Dosage: 10 MILLIGRAM PER SQUARE METRE, GIVEN 6-12 HOURS BEFORE BLINCYTO

REACTIONS (3)
  - Cytokine release syndrome [Unknown]
  - Acute lymphocytic leukaemia recurrent [Fatal]
  - Therapy non-responder [Unknown]
